FAERS Safety Report 4518688-3 (Version None)
Quarter: 2004Q4

REPORT INFORMATION
  Report Type: 
  Country: None (occurrence: None)
  Receive Date: 20041201
  Receipt Date: 20041125
  Transmission Date: 20050328
  Serious: Yes (Disabling)
  Sender: FDA-Public Use
  Company Number: TCI2003A03640

PATIENT
  Age: 90 Year
  Sex: Male

DRUGS (13)
  1. ACTOS [Suspect]
     Indication: DIABETES MELLITUS NON-INSULIN-DEPENDENT
     Dosage: 30 MG (30 MG, 1 IN 1 D)  PER ORAL
     Route: 048
     Dates: start: 20000501, end: 20001126
  2. DASEN (SERRAPEPTASE) [Concomitant]
  3. GLYBURIDE [Concomitant]
  4. ISOSORBIDE MONONITRATE [Concomitant]
  5. DIGOXIN [Concomitant]
  6. FUROSEMIDE [Concomitant]
  7. NICORANDIL [Concomitant]
  8. EBASTINE [Concomitant]
  9. RILMAZAFONE [Concomitant]
  10. TEMOCAPTRIL HYDROCHLORIDE [Concomitant]
  11. EPRAZINONE HYDROCHLORIDE [Concomitant]
  12. AZITHROMYCIN [Concomitant]
  13. AMBROXOL HYDROCHLORIDE [Concomitant]

REACTIONS (1)
  - MYOCARDIAL INFARCTION [None]
